FAERS Safety Report 9467091 (Version 1)
Quarter: 2013Q3

REPORT INFORMATION
  Report Type: Spontaneous
  Country: DE (occurrence: DE)
  Receive Date: 20130820
  Receipt Date: 20130820
  Transmission Date: 20140515
  Serious: Yes (Life-Threatening)
  Sender: FDA-Public Use
  Company Number: DE-WATSON-2013-14610

PATIENT
  Sex: Female

DRUGS (1)
  1. CEFUROXIME (UNKNOWN) [Suspect]
     Indication: ENDOMETRITIS
     Dosage: UNK, UNKNOWN
     Route: 065
     Dates: start: 2013

REACTIONS (6)
  - Psychotic disorder [Recovering/Resolving]
  - Depression [Recovering/Resolving]
  - Suicidal ideation [Recovering/Resolving]
  - Ear pain [Recovering/Resolving]
  - Chest pain [Recovering/Resolving]
  - Decreased appetite [Recovering/Resolving]
